FAERS Safety Report 7033278-9 (Version None)
Quarter: 2010Q4

REPORT INFORMATION
  Report Type: 
  Country: None (occurrence: None)
  Receive Date: 20101007
  Receipt Date: 20101004
  Transmission Date: 20110411
  Serious: Yes (Hospitalization)
  Sender: FDA-Public Use
  Company Number: A0884766A

PATIENT
  Age: 69 Year
  Sex: Male

DRUGS (24)
  1. COREG CR [Suspect]
     Indication: HYPERTENSION
     Dosage: 80MG PER DAY
     Route: 048
     Dates: start: 20100914, end: 20100917
  2. ASPIRIN [Concomitant]
  3. PROTONIX [Concomitant]
  4. METOPROLOL TARTRATE [Concomitant]
  5. LASIX [Concomitant]
  6. MINOXIDIL [Concomitant]
  7. ZYLOPRIM [Concomitant]
  8. AVAPRO [Concomitant]
  9. POTASSIUM [Concomitant]
  10. SERTRALINE HYDROCHLORIDE [Concomitant]
  11. LANTUS [Concomitant]
  12. AVODART [Concomitant]
  13. VITAMIN D [Concomitant]
  14. PLAVIX [Concomitant]
  15. MULTI-VITAMIN [Concomitant]
  16. HYDROCODONE [Concomitant]
  17. ALOPURINOL [Concomitant]
  18. ALPHA LIPOIC ACID [Concomitant]
  19. STOOL SOFTENER [Concomitant]
  20. NITROGLYCERIN SPRAY [Concomitant]
  21. COQ-10 [Concomitant]
  22. UNSPECIFIED MEDICATION [Concomitant]
  23. PREDNISONE [Concomitant]
  24. FLEXERIL [Concomitant]

REACTIONS (6)
  - FLUID RETENTION [None]
  - HYPERSENSITIVITY [None]
  - LOCAL SWELLING [None]
  - SWELLING FACE [None]
  - SWOLLEN TONGUE [None]
  - THROAT TIGHTNESS [None]
